FAERS Safety Report 4735429-5 (Version None)
Quarter: 2005Q3

REPORT INFORMATION
  Report Type: 
  Country: None (occurrence: None)
  Receive Date: 20050805
  Receipt Date: 20050725
  Transmission Date: 20060218
  Serious: Yes (Hospitalization)
  Sender: FDA-Public Use
  Company Number: US-JNJFOC-20050705368

PATIENT
  Sex: Male

DRUGS (4)
  1. REMICADE [Suspect]
     Indication: CROHN'S DISEASE
  2. IMURAN [Concomitant]
  3. STEROIDS [Concomitant]
  4. 5-ASA [Concomitant]

REACTIONS (2)
  - FUNGAL SEPSIS [None]
  - SEPTIC EMBOLUS [None]
